FAERS Safety Report 9701268 (Version 1)
Quarter: 2013Q4

REPORT INFORMATION
  Report Type: Spontaneous
  Country: US (occurrence: None)
  Receive Date: 20131120
  Receipt Date: 20131120
  Transmission Date: 20140711
  Serious: No
  Sender: FDA-Public Use
  Company Number: None

PATIENT
  Age: 52 Year
  Sex: Male
  Weight: 79.5 kg

DRUGS (4)
  1. FLUOROURACIL [Suspect]
  2. BEVACIZUMAB [Suspect]
  3. LEUCOVORIN CALCIUM [Suspect]
  4. OXALIPLATIN [Suspect]

REACTIONS (2)
  - Hypoaesthesia [None]
  - Hypoaesthesia [None]
